FAERS Safety Report 7796646-3 (Version None)
Quarter: 2011Q3

REPORT INFORMATION
  Report Type: 
  Country: None (occurrence: None)
  Receive Date: 20110930
  Receipt Date: 20110916
  Transmission Date: 20111222
  Serious: Yes (Other)
  Sender: FDA-Public Use
  Company Number: 20110659

PATIENT
  Age: 34 Year
  Sex: Female

DRUGS (6)
  1. NITROUS OXIDE [Concomitant]
  2. FENTANYL [Concomitant]
  3. MIDAZOLAM HCL [Concomitant]
  4. SUCCINYLCHOLINE CHLORIDE [Concomitant]
  5. INDIGO CARMINE INJECTION (0375-10) 8 MG/ML [Suspect]
     Indication: PHOTODYNAMIC DIAGNOSTIC PROCEDURE
     Dosage: 40 MG INTRAVENOUS
  6. PROPOFOL [Concomitant]

REACTIONS (4)
  - MATERNAL EXPOSURE DURING PREGNANCY [None]
  - VASCULAR RESISTANCE SYSTEMIC INCREASED [None]
  - HYPERTENSION [None]
  - CARDIAC INDEX INCREASED [None]
